FAERS Safety Report 4941751-X (Version None)
Quarter: 2006Q1

REPORT INFORMATION
  Report Type: 
  Country: None (occurrence: None)
  Receive Date: 20060307
  Receipt Date: 20060302
  Transmission Date: 20060701
  Serious: Yes (Death, Hospitalization)
  Sender: FDA-Public Use
  Company Number: TCI2006A01000

PATIENT
  Age: 65 Year
  Sex: Male

DRUGS (1)
  1. ACTOS [Suspect]
     Indication: BLOOD GLUCOSE DECREASED
     Dosage: 15 MG (15 MG, 1D) PER ORAL
     Route: 048

REACTIONS (1)
  - GRANULOCYTOPENIA [None]
